FAERS Safety Report 9506136 (Version 1)
Quarter: 2013Q1

REPORT INFORMATION
  Report Type: Spontaneous
  Country: US (occurrence: None)
  Receive Date: 20130305
  Receipt Date: 20130305
  Transmission Date: 20140127
  Serious: No
  Sender: FDA-Public Use
  Company Number: 163-21880-11093425

PATIENT
  Age: 58 Year
  Sex: Female
  Weight: 84.4 kg

DRUGS (1)
  1. REVLIMID [Suspect]
     Indication: PLASMA CELL MYELOMA
     Dosage: DAILY FOR 21 DAYS
     Route: 048
     Dates: start: 20110927

REACTIONS (5)
  - Arthralgia [None]
  - Cough [None]
  - Muscle spasms [None]
  - Throat irritation [None]
  - Local swelling [None]
